FAERS Safety Report 18485298 (Version 3)
Quarter: 2020Q4

REPORT INFORMATION
  Report Type: Report from Study
  Country: PL (occurrence: PL)
  Receive Date: 20201110
  Receipt Date: 20201223
  Transmission Date: 20210114
  Serious: Yes (Hospitalization, Other)
  Sender: FDA-Public Use
  Company Number: PL-GLAXOSMITHKLINE-PL2020221064

PATIENT
  Age: 77 Year
  Sex: Male
  Weight: 96 kg

DRUGS (12)
  1. METFORMAX [Concomitant]
     Active Substance: METFORMIN HYDROCHLORIDE
     Indication: TYPE 2 DIABETES MELLITUS
     Dosage: 500 MG, QD
     Route: 048
     Dates: start: 2013
  2. TELMISARTAN. [Concomitant]
     Active Substance: TELMISARTAN
     Indication: HYPERTENSION
     Dosage: 80 MG, QD
     Route: 048
     Dates: start: 2014
  3. NIRAPARIB [Suspect]
     Active Substance: NIRAPARIB
     Indication: PROSTATE CANCER METASTATIC
     Dosage: 200 MG, QD
     Route: 048
     Dates: start: 20190829, end: 20201028
  4. ABIRATERONE ACETATE. [Concomitant]
     Active Substance: ABIRATERONE ACETATE
     Indication: PROSTATE CANCER METASTATIC
     Dosage: (1000 MG, QD) MOST RECENT DOSE RECEIVED ON 28-OCT-2020
     Route: 048
     Dates: start: 20190829, end: 20201028
  5. PREDNISONE. [Concomitant]
     Active Substance: PREDNISONE
     Indication: PROSTATE CANCER METASTATIC
     Dosage: (10 MG, QD) MOST RECENT DOSE RECEIVED ON 28-OCT-2020
     Route: 048
     Dates: start: 20190829, end: 20201029
  6. NEOPARIN [Concomitant]
     Active Substance: ENOXAPARIN SODIUM
     Indication: PULMONARY EMBOLISM
     Dosage: 80 MG, BID
     Route: 058
     Dates: start: 20200729
  7. ELIGARD [Concomitant]
     Active Substance: LEUPROLIDE ACETATE
     Indication: PROSTATE CANCER METASTATIC
     Dosage: 45 MG
     Route: 058
     Dates: start: 20160128
  8. CONTROLOC [Concomitant]
     Active Substance: PANTOPRAZOLE SODIUM
     Indication: GASTROINTESTINAL DISORDER THERAPY
     Dosage: 40 MG, QD
     Route: 048
     Dates: start: 20191008
  9. ACARD [Concomitant]
     Active Substance: ASPIRIN
     Indication: CARDIOVASCULAR EVENT PROPHYLAXIS
     Dosage: 75 MG, QD
     Route: 048
     Dates: start: 20190830
  10. HYDROCHLOROTHIAZIDE. [Concomitant]
     Active Substance: HYDROCHLOROTHIAZIDE
     Indication: HYPERTENSION
     Dosage: 12.5 MG, QD
     Route: 048
     Dates: start: 2014
  11. ZOMIKOS [Concomitant]
     Indication: PROPHYLAXIS
     Dosage: 4 MG, 4 TIMES A WEEK
     Route: 042
     Dates: start: 20180928
  12. ESPUMISAN [Concomitant]
     Active Substance: DIMETHICONE
     Indication: NAUSEA
     Dosage: 2 DF, BID
     Route: 048
     Dates: start: 20190911

REACTIONS (1)
  - General physical health deterioration [Recovered/Resolved]

NARRATIVE: CASE EVENT DATE: 20201029
